FAERS Safety Report 5116985-4 (Version None)
Quarter: 2006Q3

REPORT INFORMATION
  Report Type: 
  Country: None (occurrence: None)
  Receive Date: 20060928
  Receipt Date: 20060925
  Transmission Date: 20061208
  Serious: Yes (Life-Threatening, Disabling, Other)
  Sender: FDA-Public Use
  Company Number: GB-MERCK-0609GBR00123

PATIENT
  Age: 73 Year
  Sex: Female

DRUGS (6)
  1. FOSAMAX [Suspect]
     Indication: OSTEOPOROSIS
     Route: 048
     Dates: start: 20060207, end: 20060722
  2. BENDROFLUMETHIAZIDE [Concomitant]
     Route: 065
     Dates: start: 19970101
  3. CHLORDIAZEPOXIDE [Concomitant]
     Route: 065
     Dates: start: 19980101
  4. ACETAMINOPHEN AND CODEINE PHOSPHATE [Concomitant]
     Route: 065
     Dates: start: 20060316
  5. OMEPRAZOLE [Concomitant]
     Route: 065
     Dates: start: 20040420
  6. ZOPICLONE [Concomitant]
     Route: 065
     Dates: start: 20050411

REACTIONS (2)
  - CELLULITIS [None]
  - ULCER [None]
